FAERS Safety Report 23139167 (Version 1)
Quarter: 2023Q4

REPORT INFORMATION
  Report Type: Spontaneous
  Country: US (occurrence: None)
  Receive Date: 20231102
  Receipt Date: 20231102
  Transmission Date: 20240109
  Serious: Yes (Hospitalization)
  Sender: FDA-Public Use
  Company Number: None

PATIENT
  Sex: Female

DRUGS (2)
  1. KESIMPTA [Suspect]
     Active Substance: OFATUMUMAB
     Indication: Multiple sclerosis
     Dosage: FREQUENCY : MONTHLY;?
     Route: 058
  2. OCREVUS [Concomitant]
     Active Substance: OCRELIZUMAB

REACTIONS (6)
  - Back pain [None]
  - Muscle twitching [None]
  - Oral disorder [None]
  - Blepharospasm [None]
  - Neck pain [None]
  - Nonspecific reaction [None]
